FAERS Safety Report 14941807 (Version 1)
Quarter: 2018Q2

REPORT INFORMATION
  Report Type: Report from Study
  Country: CN (occurrence: CN)
  Receive Date: 20180527
  Receipt Date: 20180527
  Transmission Date: 20180711
  Serious: Yes (Hospitalization, Other)
  Sender: FDA-Public Use
  Company Number: PHHY2018CN009066

PATIENT
  Age: 41 Year
  Sex: Male
  Weight: 52 kg

DRUGS (37)
  1. ALBUMIN HUMAN [Concomitant]
     Active Substance: ALBUMIN HUMAN
     Dosage: 50 ML, BID
     Dates: start: 20171128, end: 20171130
  2. MICAFUNGIN SODIUM [Concomitant]
     Active Substance: MICAFUNGIN SODIUM
     Indication: INFECTION PROPHYLAXIS
     Dosage: 100 MG, QD
     Route: 042
     Dates: start: 20171123, end: 20171128
  3. ALPROSTADIL. [Concomitant]
     Active Substance: ALPROSTADIL
     Indication: PERIPHERAL VASCULAR DISORDER
     Dosage: 20 UG, QD
     Route: 042
     Dates: start: 20171123, end: 20171128
  4. COENZYME [Concomitant]
     Active Substance: UBIDECARENONE
     Indication: PROPHYLAXIS
     Dosage: 10 MG, QD
     Route: 042
     Dates: start: 20171123, end: 20171202
  5. RIBOFLAVIN 5^-PHOSPHATE SODIUM [Concomitant]
     Active Substance: RIBOFLAVIN 5^-PHOSPHATE SODIUM
     Indication: PRODUCT USED FOR UNKNOWN INDICATION
     Dosage: 20 MG, QD
     Route: 042
     Dates: start: 20171123, end: 20171202
  6. GLUTAMINE [Concomitant]
     Active Substance: GLUTAMINE
     Indication: PRODUCT USED FOR UNKNOWN INDICATION
     Dosage: 100 ML, QD
     Route: 042
     Dates: start: 20171123, end: 20171123
  7. PENTAZOCINE [Concomitant]
     Active Substance: PENTAZOCINE
     Indication: WOUND COMPLICATION
     Dosage: 90 MG, BID
     Route: 042
     Dates: start: 20171123, end: 20171123
  8. TORASEMIDE [Concomitant]
     Active Substance: TORSEMIDE
     Indication: POLYURIA
     Dosage: 80 MG, TID
     Route: 042
     Dates: start: 20171128, end: 20171128
  9. POTASSIUM CHLORIDE. [Concomitant]
     Active Substance: POTASSIUM CHLORIDE
     Indication: BLOOD DISORDER
     Dosage: 80ML, QD
     Route: 042
     Dates: start: 20171123, end: 20171123
  10. LEVAMLODIPINE BESILATE [Concomitant]
     Active Substance: LEVAMLODIPINE BESYLATE
     Indication: HYPERTENSION
     Dosage: 2.5 MG, QD
     Route: 048
     Dates: start: 20171128, end: 20171128
  11. RINGER LACTAT [Concomitant]
     Indication: ACID BASE BALANCE ABNORMAL
  12. BASILIXIMAB [Suspect]
     Active Substance: BASILIXIMAB
     Dosage: 20 MG, QD
     Route: 065
     Dates: start: 20171226, end: 20171226
  13. CEFOPERAZONE SODIUM AND TAZOBACTAM SODIUM [Concomitant]
     Active Substance: CEFOPERAZONE\TAZOBACTAM SODIUM
     Indication: INFECTION PROPHYLAXIS
     Dosage: 4000 MG, BID
     Route: 042
     Dates: start: 20171123, end: 20171128
  14. TORASEMIDE [Concomitant]
     Active Substance: TORSEMIDE
     Dosage: 120 MG, QD
     Route: 042
     Dates: start: 20171128, end: 20171228
  15. FUROSEMIDE. [Concomitant]
     Active Substance: FUROSEMIDE
     Indication: POLYURIA
     Dosage: 100 MG, TID
     Route: 042
     Dates: start: 20171123, end: 20171123
  16. ALBUMIN HUMAN [Concomitant]
     Active Substance: ALBUMIN HUMAN
     Indication: PRODUCT USED FOR UNKNOWN INDICATION
     Dosage: 100 ML, BID (20%)
     Route: 042
     Dates: start: 20171123, end: 20171128
  17. ACETYLEINE [Concomitant]
     Indication: PRODUCT USED FOR UNKNOWN INDICATION
     Dosage: 4000 MG, QD
     Route: 042
     Dates: start: 20171123, end: 20171202
  18. AMINO ACID [Concomitant]
     Active Substance: AMINO ACIDS
     Indication: PRODUCT USED FOR UNKNOWN INDICATION
     Dosage: 500 ML, QD
     Route: 042
     Dates: start: 20171123, end: 20171123
  19. SODIUM CHLORIDE. [Concomitant]
     Active Substance: SODIUM CHLORIDE
     Indication: BLOOD DISORDER
     Dosage: 2000 ML, QD
     Route: 042
     Dates: start: 20171123, end: 20171123
  20. ESTAZOLAM. [Concomitant]
     Active Substance: ESTAZOLAM
     Indication: ANXIETY
     Dosage: 1 MG, QD
     Route: 048
     Dates: start: 20171123, end: 20171123
  21. RECOMBINANT HUMAN ERYTHROPOIETIN [Concomitant]
     Active Substance: ERYTHROPOIETIN
     Indication: PRODUCT USED FOR UNKNOWN INDICATION
     Dosage: 1 U, QD
     Route: 058
     Dates: start: 20171123, end: 20171123
  22. MYFORTIC [Suspect]
     Active Substance: MYCOPHENOLATE SODIUM
     Indication: RENAL TRANSPLANT
     Dosage: 1440 MG, QD
     Route: 048
     Dates: start: 20171123, end: 20171130
  23. MYFORTIC [Suspect]
     Active Substance: MYCOPHENOLATE SODIUM
     Dosage: 1080 MG, QD
     Route: 048
     Dates: start: 20171201, end: 20171206
  24. MYFORTIC [Suspect]
     Active Substance: MYCOPHENOLATE SODIUM
     Dosage: 720 MG, QD
     Route: 048
     Dates: start: 20171207
  25. AMBROXOL HYDROCHLORIDE [Concomitant]
     Active Substance: AMBROXOL HYDROCHLORIDE
     Indication: SPUTUM INCREASED
     Dosage: 210 MG, BID
     Route: 042
     Dates: start: 20171123, end: 20171128
  26. TIGECYCLINE. [Concomitant]
     Active Substance: TIGECYCLINE
     Indication: INFECTION PROPHYLAXIS
     Dosage: 50 MG, BID
     Route: 042
     Dates: start: 20171123, end: 20171128
  27. SODIUM BICARBONATE. [Concomitant]
     Active Substance: SODIUM BICARBONATE
     Indication: BLOOD DISORDER
     Dosage: 2000 ML, QD
     Route: 042
     Dates: start: 20171123, end: 20171123
  28. SODIUM BICARBONATE. [Concomitant]
     Active Substance: SODIUM BICARBONATE
     Dosage: 250 ML, BID (5%)
     Route: 042
     Dates: start: 20171128, end: 20171128
  29. CASPOFUNGIN ACETATE. [Concomitant]
     Active Substance: CASPOFUNGIN ACETATE
     Indication: INFECTION PROPHYLAXIS
     Dosage: 50 MG, QD
     Route: 042
     Dates: start: 20171128, end: 20171204
  30. LANSOPRAZOLE. [Concomitant]
     Active Substance: LANSOPRAZOLE
     Indication: PROPHYLAXIS
     Dosage: 30 MG, BID
     Route: 042
     Dates: start: 20171123, end: 20171128
  31. PAPAVERINE [Concomitant]
     Active Substance: PAPAVERINE
     Indication: PROPHYLAXIS
     Dosage: 90 MG, QD
     Route: 042
     Dates: start: 20171123, end: 20171128
  32. POTASSIUM CHLORIDE. [Concomitant]
     Active Substance: POTASSIUM CHLORIDE
     Dosage: 30 ML, QD
     Route: 042
     Dates: start: 20171128, end: 20171128
  33. RINGER LACTAT [Concomitant]
     Indication: ELECTROLYTE IMBALANCE
     Dosage: 500 ML, QD
     Route: 042
     Dates: start: 20171123, end: 20171123
  34. BASILIXIMAB [Suspect]
     Active Substance: BASILIXIMAB
     Indication: RENAL TRANSPLANT
     Dosage: 20 MG, QD
     Route: 065
     Dates: start: 20171122, end: 20171122
  35. METHIONINE [Concomitant]
     Active Substance: METHIONINE
     Indication: PROPHYLAXIS
     Dosage: 220 MG, QD
     Route: 042
     Dates: start: 20171123, end: 20171202
  36. VITAMIN B1 [Concomitant]
     Active Substance: THIAMINE HYDROCHLORIDE
     Indication: PROPHYLAXIS
     Dosage: 220 MG, QD
     Route: 042
     Dates: start: 20171123, end: 20171202
  37. METHYLPREDNISOLONE. [Concomitant]
     Active Substance: METHYLPREDNISOLONE
     Indication: IMMUNOSUPPRESSANT DRUG THERAPY
     Dosage: 500 MG, QD
     Route: 042
     Dates: start: 20171123, end: 20171123

REACTIONS (8)
  - Abdominal distension [Recovered/Resolved]
  - Coagulopathy [Recovered/Resolved]
  - Hyperkalaemia [Recovered/Resolved]
  - Pyrexia [Unknown]
  - Anaemia [Not Recovered/Not Resolved]
  - Dysuria [Unknown]
  - Hyperuricaemia [Recovered/Resolved]
  - Urinary tract infection [Recovered/Resolved]

NARRATIVE: CASE EVENT DATE: 20171123
